FAERS Safety Report 13641475 (Version 3)
Quarter: 2017Q3

REPORT INFORMATION
  Report Type: Spontaneous
  Country: GB (occurrence: GB)
  Receive Date: 20170612
  Receipt Date: 20170918
  Transmission Date: 20171127
  Serious: Yes (Disabling, Other)
  Sender: FDA-Public Use
  Company Number: GB-ACCORD-052409

PATIENT
  Sex: Male

DRUGS (2)
  1. LAMICTAL [Interacting]
     Active Substance: LAMOTRIGINE
     Indication: AUTISM SPECTRUM DISORDER
     Dosage: ALSO RECEIVED FOR THE PAST FEW YEARS
     Dates: start: 201609
  2. TRAMADOL/TRAMADOL HYDROCHLORIDE [Suspect]
     Active Substance: TRAMADOL HYDROCHLORIDE
     Indication: WOUND
     Dosage: DOSE: (50 MG-100 MG) 50 MG IN MORNING AND 50 MG AT NIGHT
     Route: 048
     Dates: start: 20160909, end: 20160916

REACTIONS (11)
  - Hallucination [Not Recovered/Not Resolved]
  - Drug interaction [Unknown]
  - Constipation [Unknown]
  - Insomnia [Unknown]
  - Fear [Recovering/Resolving]
  - Agitation [Recovering/Resolving]
  - Confusional state [None]
  - Epilepsy [Recovering/Resolving]
  - Delusion [Recovering/Resolving]
  - Depression [Not Recovered/Not Resolved]
  - Autism spectrum disorder [Recovering/Resolving]

NARRATIVE: CASE EVENT DATE: 201609
